FAERS Safety Report 15424892 (Version 1)
Quarter: 2018Q3

REPORT INFORMATION
  Report Type: Spontaneous
  Country: US (occurrence: US)
  Receive Date: 20180925
  Receipt Date: 20180925
  Transmission Date: 20181010
  Serious: No
  Sender: FDA-Public Use
  Company Number: US-EMD SERONO-7139144

PATIENT
  Sex: Female
  Weight: 70 kg

DRUGS (3)
  1. ACETYLSALICYLIC ACID [Concomitant]
     Active Substance: ASPIRIN
     Indication: PREMEDICATION
  2. REBIF [Suspect]
     Active Substance: INTERFERON BETA-1A
     Route: 058
     Dates: end: 2017
  3. REBIF [Suspect]
     Active Substance: INTERFERON BETA-1A
     Indication: PRODUCT USED FOR UNKNOWN INDICATION
     Route: 058
     Dates: start: 20100607

REACTIONS (5)
  - Feeling abnormal [Unknown]
  - Injection site pain [Recovering/Resolving]
  - Drug intolerance [Unknown]
  - Injection site erythema [Recovering/Resolving]
  - Mobility decreased [Recovering/Resolving]
